FAERS Safety Report 24871899 (Version 1)
Quarter: 2025Q1

REPORT INFORMATION
  Report Type: Spontaneous
  Country: US (occurrence: US)
  Receive Date: 20250122
  Receipt Date: 20250122
  Transmission Date: 20250409
  Serious: Yes (Death, Other)
  Sender: ORGANON
  Company Number: US-ORGANON-O2501USA002071

PATIENT
  Age: 46 Year
  Sex: Female

DRUGS (8)
  1. REMERON [Suspect]
     Active Substance: MIRTAZAPINE
     Route: 048
  2. OXYCODONE [Suspect]
     Active Substance: OXYCODONE
     Route: 048
  3. METHOCARBAMOL [Suspect]
     Active Substance: METHOCARBAMOL
     Route: 048
  4. HYDROXYZINE [Suspect]
     Active Substance: HYDROXYZINE HYDROCHLORIDE
     Route: 048
  5. GABAPENTIN [Suspect]
     Active Substance: GABAPENTIN
     Route: 048
  6. PAROXETINE [Suspect]
     Active Substance: PAROXETINE
     Route: 048
  7. LORAZEPAM [Suspect]
     Active Substance: LORAZEPAM
     Route: 048
  8. ALCOHOL [Suspect]
     Active Substance: ALCOHOL
     Route: 048

REACTIONS (2)
  - Suspected suicide [Fatal]
  - Cardio-respiratory arrest [Unknown]
